FAERS Safety Report 9377491 (Version 1)
Quarter: 2013Q3

REPORT INFORMATION
  Report Type: Spontaneous
  Country: US (occurrence: US)
  Receive Date: 20130701
  Receipt Date: 20130701
  Transmission Date: 20140515
  Serious: No
  Sender: FDA-Public Use
  Company Number: US-ASTRAZENECA-2013SE41557

PATIENT
  Age: 689 Month
  Sex: Female
  Weight: 134.3 kg

DRUGS (5)
  1. NEXIUM [Suspect]
     Indication: GASTROOESOPHAGEAL REFLUX DISEASE
     Route: 048
     Dates: start: 2009, end: 201303
  2. EXFORGE [Concomitant]
     Indication: HYPERTENSION
     Route: 048
     Dates: start: 2012
  3. GABAPENTIN [Concomitant]
     Dates: start: 2013, end: 20130604
  4. LEXAPRO [Concomitant]
     Indication: STRESS
     Route: 048
     Dates: start: 2011
  5. PREVACID [Concomitant]
     Indication: GASTROOESOPHAGEAL REFLUX DISEASE
     Dosage: DAILY
     Route: 048
     Dates: start: 2013

REACTIONS (3)
  - Dyspepsia [Not Recovered/Not Resolved]
  - Gastrooesophageal reflux disease [Not Recovered/Not Resolved]
  - Intentional drug misuse [Unknown]
